FAERS Safety Report 6042501-9 (Version None)
Quarter: 2009Q1

REPORT INFORMATION
  Report Type: 
  Country: None (occurrence: None)
  Receive Date: 20090116
  Receipt Date: 20090105
  Transmission Date: 20090719
  Serious: Yes (Hospitalization)
  Sender: FDA-Public Use
  Company Number: FI-GENENTECH-274455

PATIENT
  Age: 55 Year
  Sex: Female

DRUGS (13)
  1. MABTHERA [Suspect]
     Indication: RHEUMATOID ARTHRITIS
     Dosage: UNK
     Route: 042
     Dates: start: 20070322
  2. AZATHIOPRINE [Concomitant]
     Indication: DRUG USE FOR UNKNOWN INDICATION
     Dosage: 150 MG, QD
     Dates: end: 20080513
  3. REUMACON [Concomitant]
     Indication: DRUG USE FOR UNKNOWN INDICATION
  4. PREDNISOLONE [Concomitant]
     Indication: DRUG USE FOR UNKNOWN INDICATION
  5. FURESIS [Concomitant]
     Indication: DRUG USE FOR UNKNOWN INDICATION
  6. ENALAPRIL MALEATE [Concomitant]
     Indication: DRUG USE FOR UNKNOWN INDICATION
  7. HYDROCHLOROTHIAZIDE [Concomitant]
     Indication: DRUG USE FOR UNKNOWN INDICATION
  8. PRIMASPAN [Concomitant]
     Indication: DRUG USE FOR UNKNOWN INDICATION
  9. EMCONCOR [Concomitant]
     Indication: DRUG USE FOR UNKNOWN INDICATION
  10. SIMVASTATIN [Concomitant]
     Indication: DRUG USE FOR UNKNOWN INDICATION
  11. CALCIUM CARBONATE [Concomitant]
     Indication: DRUG USE FOR UNKNOWN INDICATION
  12. OPTINATE SEPTIMUM [Concomitant]
     Indication: DRUG USE FOR UNKNOWN INDICATION
  13. ENOXAPARIN SODIUM [Concomitant]
     Indication: DRUG USE FOR UNKNOWN INDICATION

REACTIONS (2)
  - PULMONARY EMBOLISM [None]
  - PYREXIA [None]
